FAERS Safety Report 14131783 (Version 1)
Quarter: 2017Q4

REPORT INFORMATION
  Report Type: Spontaneous
  Country: FR (occurrence: FR)
  Receive Date: 20171026
  Receipt Date: 20171026
  Transmission Date: 20180321
  Serious: Yes (Hospitalization, Other)
  Sender: FDA-Public Use
  Company Number: FR-CELLTRION INC.-2017FR014572

PATIENT

DRUGS (6)
  1. IZALGI [Concomitant]
     Active Substance: ACETAMINOPHEN\OPIUM
  2. SPAGULAX [Concomitant]
     Active Substance: PLANTAGO OVATA SEED
  3. PURINETHOL [Concomitant]
     Active Substance: MERCAPTOPURINE
  4. MITOSYL                            /00156514/ [Concomitant]
  5. PERINDOPRIL [Concomitant]
     Active Substance: PERINDOPRIL
  6. INFLECTRA [Suspect]
     Active Substance: INFLIXIMAB-DYYB
     Indication: CROHN^S DISEASE
     Dosage: 5 MG/KG, CYCLIC
     Route: 042
     Dates: start: 20170829

REACTIONS (13)
  - Condition aggravated [Unknown]
  - Anal abscess [Unknown]
  - Cytomegalovirus infection [Unknown]
  - Lymphopenia [Unknown]
  - Livedo reticularis [Unknown]
  - Chills [Unknown]
  - Lung disorder [Recovering/Resolving]
  - Pneumonia [Unknown]
  - Dyspnoea [Unknown]
  - Alveolitis [Unknown]
  - Tachypnoea [Unknown]
  - Hypersensitivity [Unknown]
  - Pyrexia [Unknown]

NARRATIVE: CASE EVENT DATE: 20170831
